FAERS Safety Report 10668763 (Version 3)
Quarter: 2015Q1

REPORT INFORMATION
  Report Type: Spontaneous
  Country: US (occurrence: US)
  Receive Date: 20141222
  Receipt Date: 20150219
  Transmission Date: 20150720
  Serious: No
  Sender: FDA-Public Use
  Company Number: US-PFIZER INC-2014350407

PATIENT
  Age: 62 Year
  Sex: Female
  Weight: 73 kg

DRUGS (5)
  1. LYRICA [Suspect]
     Active Substance: PREGABALIN
     Indication: FIBROMYALGIA
     Dosage: 75 MG, 3X/DAY
     Dates: start: 2010
  2. RANITIDINE [Concomitant]
     Active Substance: RANITIDINE\RANITIDINE HYDROCHLORIDE
     Dosage: UNK
  3. ATIVAN [Concomitant]
     Active Substance: LORAZEPAM
     Dosage: UNK
     Dates: start: 2012
  4. SOMA [Concomitant]
     Active Substance: CARISOPRODOL
     Dosage: UNK
     Dates: start: 2010
  5. TRAMADOL [Concomitant]
     Active Substance: TRAMADOL
     Dosage: UNK
     Dates: start: 2010

REACTIONS (1)
  - Nasopharyngitis [Unknown]

NARRATIVE: CASE EVENT DATE: 20141217
